FAERS Safety Report 6641957-8 (Version None)
Quarter: 2010Q1

REPORT INFORMATION
  Report Type: 
  Country: None (occurrence: None)
  Receive Date: 20100319
  Receipt Date: 20100309
  Transmission Date: 20100710
  Serious: Yes (Other)
  Sender: FDA-Public Use
  Company Number: US-JNJFOC-20091008535

PATIENT
  Sex: Male
  Weight: 120.2 kg

DRUGS (13)
  1. REMICADE [Suspect]
     Indication: PSORIASIS
     Route: 042
     Dates: start: 20090413, end: 20091124
  2. REMICADE [Suspect]
     Route: 042
     Dates: start: 20090413, end: 20091124
  3. REMICADE [Suspect]
     Route: 042
     Dates: start: 20090413, end: 20091124
  4. REMICADE [Suspect]
     Route: 042
     Dates: start: 20090413, end: 20091124
  5. REMICADE [Suspect]
     Route: 042
     Dates: start: 20090413, end: 20091124
  6. REMICADE [Suspect]
     Route: 042
     Dates: start: 20090413, end: 20091124
  7. REMICADE [Suspect]
     Indication: PSORIATIC ARTHROPATHY
     Route: 042
     Dates: start: 20090413, end: 20091124
  8. REMICADE [Suspect]
     Route: 042
     Dates: start: 20090413, end: 20091124
  9. REMICADE [Suspect]
     Route: 042
     Dates: start: 20090413, end: 20091124
  10. REMICADE [Suspect]
     Route: 042
     Dates: start: 20090413, end: 20091124
  11. REMICADE [Suspect]
     Route: 042
     Dates: start: 20090413, end: 20091124
  12. REMICADE [Suspect]
     Route: 042
     Dates: start: 20090413, end: 20091124
  13. ^BLOOD PRESSURE^ MEDICATION [Concomitant]
     Route: 065

REACTIONS (2)
  - LUPUS-LIKE SYNDROME [None]
  - PSORIATIC ARTHROPATHY [None]
